FAERS Safety Report 10701466 (Version 1)
Quarter: 2015Q1

REPORT INFORMATION
  Report Type: Spontaneous
  Country: FI (occurrence: FI)
  Receive Date: 20150109
  Receipt Date: 20150109
  Transmission Date: 20150721
  Serious: Yes (Hospitalization, Other)
  Sender: FDA-Public Use
  Company Number: PHHY2015FI001299

PATIENT
  Age: 46 Year
  Sex: Male

DRUGS (2)
  1. CLARITHROMYCIN. [Concomitant]
     Active Substance: CLARITHROMYCIN
     Indication: SINUSITIS
     Route: 065
  2. AMOXICILLIN+CLAVULANATE [Suspect]
     Active Substance: AMOXICILLIN\CLAVULANATE POTASSIUM
     Indication: OTITIS MEDIA
     Route: 065

REACTIONS (5)
  - Clostridium difficile infection [Recovered/Resolved]
  - Gastrointestinal disorder [Recovered/Resolved]
  - Proctitis [Unknown]
  - Diarrhoea [Recovered/Resolved]
  - Colitis [Recovered/Resolved]
